FAERS Safety Report 14013232 (Version 1)
Quarter: 2017Q3

REPORT INFORMATION
  Report Type: Spontaneous
  Country: IT (occurrence: IT)
  Receive Date: 20170926
  Receipt Date: 20170926
  Transmission Date: 20171128
  Serious: Yes (Hospitalization)
  Sender: FDA-Public Use
  Company Number: IT-BAYER-2017-180701

PATIENT
  Age: 65 Year
  Sex: Male

DRUGS (1)
  1. ASPIRINA 500 MG [Suspect]
     Active Substance: ASPIRIN
     Indication: INFLAMMATION
     Dosage: UNK UNK, QD
     Route: 048
     Dates: start: 20161015, end: 20161017

REACTIONS (3)
  - Duodenal ulcer [Unknown]
  - Melaena [Unknown]
  - Asthenia [Unknown]

NARRATIVE: CASE EVENT DATE: 20161017
